FAERS Safety Report 4417964-2 (Version None)
Quarter: 2004Q3

REPORT INFORMATION
  Report Type: 
  Country: None (occurrence: None)
  Receive Date: 20040803
  Receipt Date: 20040719
  Transmission Date: 20050211
  Serious: Yes (Other)
  Sender: FDA-Public Use
  Company Number: 2004IM000757

PATIENT
  Age: 52 Year
  Sex: Male

DRUGS (1)
  1. ADVAFERON (A643_INTERFERON ALFACON-1) [Suspect]
     Indication: HEPATITIS C

REACTIONS (2)
  - CHEST X-RAY ABNORMAL [None]
  - INTERSTITIAL LUNG DISEASE [None]
